FAERS Safety Report 24917372 (Version 3)
Quarter: 2025Q2

REPORT INFORMATION
  Report Type: Report from Study
  Country: US (occurrence: US)
  Receive Date: 20250203
  Receipt Date: 20250513
  Transmission Date: 20250717
  Serious: Yes (Hospitalization, Other)
  Sender: ABBVIE
  Company Number: US-ABBVIE-6111465

PATIENT
  Age: 62 Year
  Sex: Male
  Weight: 104 kg

DRUGS (6)
  1. RINVOQ [Suspect]
     Active Substance: UPADACITINIB
     Indication: Colitis ulcerative
     Dosage: FORM STRENGTH: 45 MG
     Route: 048
     Dates: start: 202201, end: 202403
  2. RINVOQ [Suspect]
     Active Substance: UPADACITINIB
     Indication: Colitis ulcerative
     Dosage: FORM STRENGTH: 15 MG, START DATE: 2024
     Route: 048
     Dates: end: 202410
  3. RINVOQ [Suspect]
     Active Substance: UPADACITINIB
     Indication: Colitis ulcerative
     Dosage: FORM STRENGTH: 30 MILLIGRAM
     Route: 048
     Dates: start: 20250302, end: 202504
  4. RINVOQ [Suspect]
     Active Substance: UPADACITINIB
     Indication: Colitis ulcerative
     Dosage: FORM STRENGTH: 30 MG, STOP DATE: 2024
     Route: 048
     Dates: start: 202403
  5. VITAMIN D [Concomitant]
     Active Substance: VITAMIN D NOS
     Indication: Product used for unknown indication
  6. VITAMIN C [Concomitant]
     Active Substance: ASCORBIC ACID
     Indication: Product used for unknown indication

REACTIONS (15)
  - Sepsis [Recovered/Resolved]
  - Localised infection [Recovered/Resolved]
  - Ostomy bag placement [Unknown]
  - Fall [Recovered/Resolved]
  - Blood cholesterol increased [Recovering/Resolving]
  - Infection [Recovered/Resolved]
  - Buttock injury [Recovered/Resolved]
  - Pain in extremity [Recovered/Resolved]
  - Swelling [Recovered/Resolved]
  - Colitis [Recovering/Resolving]
  - Peripheral swelling [Recovered/Resolved]
  - Musculoskeletal pain [Unknown]
  - Accident [Unknown]
  - Ileostomy closure [Unknown]
  - Inappropriate schedule of product administration [Unknown]

NARRATIVE: CASE EVENT DATE: 20240101
